APPROVED DRUG PRODUCT: CICLOPIROX
Active Ingredient: CICLOPIROX
Strength: 1%
Dosage Form/Route: SHAMPOO;TOPICAL
Application: A078594 | Product #001 | TE Code: AT
Applicant: PADAGIS US LLC
Approved: Feb 16, 2010 | RLD: No | RS: Yes | Type: RX